FAERS Safety Report 4622566-9 (Version None)
Quarter: 2005Q1

REPORT INFORMATION
  Report Type: 
  Country: None (occurrence: None)
  Receive Date: 20050317
  Receipt Date: 20040802
  Transmission Date: 20050727
  Serious: Yes (Hospitalization)
  Sender: FDA-Public Use
  Company Number: PHEH2004US08358

PATIENT
  Age: 89 Year
  Sex: Female

DRUGS (3)
  1. TRILEPTAL [Suspect]
     Indication: CEREBROVASCULAR ACCIDENT PROPHYLAXIS
     Dosage: 300 MG, BID, ORAL
     Route: 048
     Dates: start: 20040501, end: 20040726
  2. MIACALCIN [Concomitant]
  3. COUMADIN [Concomitant]

REACTIONS (1)
  - BLOOD SODIUM DECREASED [None]
